FAERS Safety Report 5306879-3 (Version None)
Quarter: 2007Q2

REPORT INFORMATION
  Report Type: 
  Country: None (occurrence: None)
  Receive Date: 20070425
  Receipt Date: 20070412
  Transmission Date: 20071010
  Serious: Yes (Hospitalization)
  Sender: FDA-Public Use
  Company Number: PHEH2007US05206

PATIENT
  Age: 58 Year
  Sex: Female
  Weight: 79.365 kg

DRUGS (6)
  1. FEMARA [Suspect]
     Indication: BREAST CANCER
     Dosage: 2.5 MG, QD
     Dates: start: 20060626, end: 20070103
  2. ZYRTEC [Concomitant]
  3. LIPITOR [Concomitant]
  4. SYNTHROID [Concomitant]
  5. MOBIC [Concomitant]
  6. ZESTORETIC [Concomitant]

REACTIONS (2)
  - ABDOMINAL PAIN LOWER [None]
  - COLITIS ISCHAEMIC [None]
